FAERS Safety Report 17943578 (Version 1)
Quarter: 2020Q2

REPORT INFORMATION
  Report Type: Other
  Country: CN (occurrence: CN)
  Receive Date: 20200625
  Receipt Date: 20200625
  Transmission Date: 20200714
  Serious: Yes (Hospitalization, Other)
  Sender: FDA-Public Use
  Company Number: CN-VALIDUS PHARMACEUTICALS LLC-CN-2020VAL000546

PATIENT

DRUGS (6)
  1. ROCALTROL [Suspect]
     Active Substance: CALCITRIOL
     Indication: OSTEOPOROSIS
     Dosage: 0.25 ?G, BID (2 IN 1 D)
     Route: 048
     Dates: start: 20200529, end: 20200530
  2. ALENDRONATE SODIUM. [Concomitant]
     Active Substance: ALENDRONATE SODIUM
     Indication: OSTEOPOROSIS
     Dosage: 10 MG, QD (1 IN 1 D)
     Route: 048
     Dates: start: 20200529, end: 20200530
  3. VITAMIN D3 [Concomitant]
     Active Substance: CHOLECALCIFEROL
     Indication: OSTEOPOROSIS
     Dosage: 600 MG, QD (1 IN 1 D)
     Route: 048
     Dates: start: 20200529, end: 20200530
  4. CALCIUM CARBONATE. [Concomitant]
     Active Substance: CALCIUM CARBONATE
     Indication: OSTEOPOROSIS
     Dosage: 600 MG, QD (1 IN 1 D)
     Route: 048
     Dates: start: 20200529, end: 20200530
  5. ETORICOXIB. [Concomitant]
     Active Substance: ETORICOXIB
     Indication: OSTEOPOROSIS
     Dosage: 60 MG, QD (1 IN 1 D)
     Route: 048
     Dates: start: 20200529, end: 20200530
  6. JIN TIAN GE [Concomitant]
     Indication: OSTEOPOROSIS
     Dosage: 1.2 G, TID (3 IN 1 D)
     Route: 048
     Dates: start: 20200529, end: 20200530

REACTIONS (5)
  - Muscular weakness [Recovered/Resolved]
  - Nausea [Recovered/Resolved]
  - Dysstasia [Recovered/Resolved]
  - Loss of consciousness [Recovered/Resolved]
  - Retching [Recovered/Resolved]

NARRATIVE: CASE EVENT DATE: 20200530
